FAERS Safety Report 12177144 (Version 2)
Quarter: 2016Q1

REPORT INFORMATION
  Report Type: Report from Study
  Country: BR (occurrence: BR)
  Receive Date: 20160314
  Receipt Date: 20160328
  Transmission Date: 20160526
  Serious: Yes (Other)
  Sender: FDA-Public Use
  Company Number: PHHY2016BR033789

PATIENT
  Age: 91 Year
  Sex: Female
  Weight: 55 kg

DRUGS (3)
  1. REMINYL [Concomitant]
     Active Substance: GALANTAMINE
     Indication: CEREBRAL ISCHAEMIA
     Dosage: 1 DF, QD (10 YEARS AGO)
     Route: 048
  2. DEPAKENE [Concomitant]
     Active Substance: VALPROIC ACID
     Indication: CEREBRAL ISCHAEMIA
     Dosage: 300 MG, QD (10 YEARS AGO)
     Route: 048
  3. ACLASTA [Suspect]
     Active Substance: ZOLEDRONIC ACID
     Indication: OSTEOPOROSIS
     Dosage: 5 MG, Q12MO
     Route: 042

REACTIONS (10)
  - Contusion [Recovering/Resolving]
  - Weight decreased [Unknown]
  - Crying [Recovered/Resolved]
  - Hypoaesthesia [Recovering/Resolving]
  - Joint injury [Recovering/Resolving]
  - Malaise [Recovering/Resolving]
  - Fall [Recovering/Resolving]
  - Hypokinesia [Recovering/Resolving]
  - Foot fracture [Recovering/Resolving]
  - Vein disorder [Unknown]

NARRATIVE: CASE EVENT DATE: 20160229
